FAERS Safety Report 25133351 (Version 14)
Quarter: 2025Q2

REPORT INFORMATION
  Report Type: Spontaneous
  Country: US (occurrence: US)
  Receive Date: 20250328
  Receipt Date: 20250619
  Transmission Date: 20250717
  Serious: Yes (Hospitalization, Other)
  Sender: UNITED THERAPEUTICS
  Company Number: US-UNITED THERAPEUTICS-UNT-2025-009962

PATIENT
  Age: 73 Year
  Sex: Female
  Weight: 60.998 kg

DRUGS (29)
  1. REMODULIN [Suspect]
     Active Substance: TREPROSTINIL
     Indication: Pulmonary arterial hypertension
  2. REMODULIN [Suspect]
     Active Substance: TREPROSTINIL
  3. REMODULIN [Suspect]
     Active Substance: TREPROSTINIL
  4. REMODULIN [Suspect]
     Active Substance: TREPROSTINIL
  5. REMODULIN [Suspect]
     Active Substance: TREPROSTINIL
     Dates: start: 20250226, end: 20250609
  6. LASIX [Suspect]
     Active Substance: FUROSEMIDE
     Indication: Swelling face
  7. LASIX [Suspect]
     Active Substance: FUROSEMIDE
     Indication: Peripheral swelling
  8. LASIX [Suspect]
     Active Substance: FUROSEMIDE
     Indication: Abdominal distension
  9. SOTATERCEPT [Suspect]
     Active Substance: SOTATERCEPT
     Indication: Product used for unknown indication
  10. ADEMPAS [Concomitant]
     Active Substance: RIOCIGUAT
     Indication: Product used for unknown indication
  11. POTASSIUM ACETATE [Concomitant]
     Active Substance: POTASSIUM ACETATE
     Indication: Product used for unknown indication
  12. NIFEDIPINE [Concomitant]
     Active Substance: NIFEDIPINE
     Indication: Product used for unknown indication
  13. SODIUM CHLORIDE [Concomitant]
     Active Substance: SODIUM CHLORIDE
     Indication: Product used for unknown indication
  14. ESOMEPRAZOLE MAGNESIUM [Concomitant]
     Active Substance: ESOMEPRAZOLE MAGNESIUM
     Indication: Product used for unknown indication
  15. OPSUMIT [Concomitant]
     Active Substance: MACITENTAN
     Indication: Product used for unknown indication
  16. VITAMIN D3 [Concomitant]
     Active Substance: CHOLECALCIFEROL
     Indication: Product used for unknown indication
  17. ESCITALOPRAM OXALATE [Concomitant]
     Active Substance: ESCITALOPRAM OXALATE
     Indication: Product used for unknown indication
  18. OXYGEN [Concomitant]
     Active Substance: OXYGEN
     Indication: Product used for unknown indication
  19. SIMVASTATIN [Concomitant]
     Active Substance: SIMVASTATIN
     Indication: Product used for unknown indication
  20. VITAMIN B12 [Concomitant]
     Active Substance: CYANOCOBALAMIN
     Indication: Product used for unknown indication
  21. UNSPECIFIED INGREDIENT [Concomitant]
     Active Substance: UNSPECIFIED INGREDIENT
     Indication: Product used for unknown indication
  22. ALBUTEROL SULFATE [Concomitant]
     Active Substance: ALBUTEROL SULFATE
     Indication: Product used for unknown indication
  23. POTASSIUM CHLORIDE [Concomitant]
     Active Substance: POTASSIUM CHLORIDE
     Indication: Product used for unknown indication
  24. SILDENAFIL [Concomitant]
     Active Substance: SILDENAFIL
     Indication: Product used for unknown indication
  25. ATORVASTATIN CALCIUM [Concomitant]
     Active Substance: ATORVASTATIN CALCIUM
     Indication: Product used for unknown indication
  26. ASPIRIN [Concomitant]
     Active Substance: ASPIRIN
     Indication: Product used for unknown indication
  27. AFLURIA NOS [Concomitant]
     Active Substance: INFLUENZA VIRUS VACCINE TRIVALENT TYPE A+B AFLURIA
     Indication: Product used for unknown indication
  28. DIGOXIN [Concomitant]
     Active Substance: DIGOXIN
     Indication: Product used for unknown indication
  29. BUMETANIDE [Concomitant]
     Active Substance: BUMETANIDE
     Indication: Product used for unknown indication

REACTIONS (36)
  - Acute respiratory failure [Unknown]
  - Hypoxia [Unknown]
  - Colitis [Unknown]
  - Urinary tract infection [Unknown]
  - Asthenia [Unknown]
  - Decreased appetite [Not Recovered/Not Resolved]
  - Malaise [Unknown]
  - Ascites [Unknown]
  - Nasopharyngitis [Unknown]
  - Oropharyngeal pain [Unknown]
  - Nasal congestion [Unknown]
  - Epistaxis [Unknown]
  - Nasal dryness [Unknown]
  - Nausea [Unknown]
  - Erythema [Unknown]
  - Productive cough [Not Recovered/Not Resolved]
  - Oedema peripheral [Unknown]
  - Illness [Unknown]
  - Abdominal pain [Unknown]
  - Speech disorder [Unknown]
  - Fluid retention [Unknown]
  - Dyspnoea [Unknown]
  - Face oedema [Unknown]
  - Constipation [Unknown]
  - Dyspnoea exertional [Unknown]
  - Grief reaction [Unknown]
  - Therapy non-responder [Unknown]
  - Fatigue [Unknown]
  - Weight decreased [Unknown]
  - Somnolence [Not Recovered/Not Resolved]
  - Dehydration [Unknown]
  - Diarrhoea [Unknown]
  - Vomiting [Unknown]
  - Dyspepsia [Unknown]
  - Device dislocation [Recovered/Resolved]
  - Device difficult to use [Unknown]

NARRATIVE: CASE EVENT DATE: 20250319
